FAERS Safety Report 16197673 (Version 1)
Quarter: 2019Q2

REPORT INFORMATION
  Report Type: Report from Study
  Country: DE (occurrence: DE)
  Receive Date: 20190415
  Receipt Date: 20190415
  Transmission Date: 20190711
  Serious: Yes (Life-Threatening, Hospitalization, Other)
  Sender: FDA-Public Use
  Company Number: DE-ROCHE-1772845

PATIENT
  Age: 69 Year
  Sex: Female

DRUGS (33)
  1. CYCLOPHOSPHAMIDE. [Suspect]
     Active Substance: CYCLOPHOSPHAMIDE
     Indication: B-CELL LYMPHOMA
     Dosage: DATE OF LAST DOSE PRIOR TO SEPSIS: 21/JUN/2016
     Route: 042
     Dates: start: 20160607, end: 20160607
  2. PREDNISON [Suspect]
     Active Substance: PREDNISONE
     Dosage: FOR 5 DAYS
     Route: 048
     Dates: start: 20160621, end: 20160625
  3. METOCLOPRAMIDE. [Concomitant]
     Active Substance: METOCLOPRAMIDE
     Indication: NAUSEA
     Dosage: DAILY DOSE: 1-3 MG
     Route: 065
     Dates: start: 20160608, end: 20160609
  4. FUROSEMIDE. [Concomitant]
     Active Substance: FUROSEMIDE
     Dosage: FOR 2 DAYS
     Route: 042
     Dates: start: 20160607, end: 20160622
  5. BENZBROMARON [Concomitant]
     Indication: HYPERURICAEMIA
     Route: 048
     Dates: start: 20160621
  6. RITUXIMAB. [Suspect]
     Active Substance: RITUXIMAB
     Dosage: FOR 1 DAY?DATE OF MOST RECENT DOSE PRIOR TO SAE: 20/JUN/2016
     Route: 042
     Dates: start: 20160620, end: 20160620
  7. DOXORUBICINE [Suspect]
     Active Substance: DOXORUBICIN
     Indication: B-CELL LYMPHOMA
     Dosage: DATE OF LAST DOSE PRIOR TO SEPSIS: 21/JUN/2016
     Route: 042
     Dates: start: 20160607, end: 20160607
  8. VINCRISTINE [Suspect]
     Active Substance: VINCRISTINE
     Indication: B-CELL LYMPHOMA
     Dosage: DATE OF LAST DOSE PRIOR TO SEPSIS: 21/JUN/2016
     Route: 042
     Dates: start: 20160607, end: 20160607
  9. VINCRISTINE [Suspect]
     Active Substance: VINCRISTINE
     Dosage: FOR 1 DAY
     Route: 042
     Dates: start: 20160621, end: 20160621
  10. PARACETAMOL [Concomitant]
     Active Substance: ACETAMINOPHEN
     Route: 048
     Dates: start: 20160606, end: 20160620
  11. ALLOPURINOL. [Concomitant]
     Active Substance: ALLOPURINOL
     Route: 048
     Dates: start: 20160607, end: 20160609
  12. DIMETINDENE MALEATE [Concomitant]
     Active Substance: DIMETHINDENE MALEATE
     Dosage: 1 AMPULE
     Route: 042
     Dates: start: 20160606, end: 20160620
  13. RITUXIMAB. [Suspect]
     Active Substance: RITUXIMAB
     Indication: B-CELL LYMPHOMA
     Dosage: DATE OF LAST DOSE PRIOR TO SAE:06/JUN/2016.
     Route: 042
     Dates: start: 20160606, end: 20160606
  14. PEGFILGRASTIM [Suspect]
     Active Substance: PEGFILGRASTIM
     Dosage: FOR 1 DAY
     Route: 058
     Dates: start: 20160624, end: 20160624
  15. ACYCLOVIR. [Concomitant]
     Active Substance: ACYCLOVIR
     Indication: INFECTION PROPHYLAXIS
     Route: 048
     Dates: start: 20160607, end: 20160609
  16. KALIUM CHLORID [Concomitant]
     Active Substance: POTASSIUM CHLORIDE
     Indication: HYPOKALAEMIA
     Dosage: DAILY DOSE: 1-3 MG
     Route: 048
     Dates: start: 20160607, end: 20160608
  17. FUROSEMIDE. [Concomitant]
     Active Substance: FUROSEMIDE
     Indication: POLYURIA
     Route: 042
     Dates: start: 20160607, end: 20160622
  18. PEGFILGRASTIM [Suspect]
     Active Substance: PEGFILGRASTIM
     Indication: B-CELL LYMPHOMA
     Route: 058
     Dates: start: 20160527, end: 20160527
  19. RED BLOOD CELLS [Concomitant]
     Active Substance: HUMAN RED BLOOD CELL
     Indication: ANAEMIA
     Dosage: 2 PACKS
     Route: 058
     Dates: start: 20160608, end: 20160623
  20. SULFAMETHOXAZOLE/TRIMETHOPRIM [Concomitant]
     Active Substance: SULFAMETHOXAZOLE\TRIMETHOPRIM
     Indication: INFECTION PROPHYLAXIS
     Route: 048
     Dates: start: 20160606
  21. METOPROLOL. [Concomitant]
     Active Substance: METOPROLOL
     Route: 048
     Dates: start: 20160606
  22. DIGITOXINE [Concomitant]
     Route: 048
     Dates: start: 20160606, end: 20160609
  23. ONDANSETRON [Concomitant]
     Active Substance: ONDANSETRON
     Indication: PROPHYLAXIS OF NAUSEA AND VOMITING
     Route: 060
     Dates: start: 20160607, end: 20160622
  24. TINZAPARIN [Concomitant]
     Active Substance: TINZAPARIN
     Indication: ATRIAL FIBRILLATION
     Route: 058
     Dates: start: 20160607
  25. LEVOTHYROXINE SODIUM. [Concomitant]
     Active Substance: LEVOTHYROXINE SODIUM
     Indication: HYPERTHYROIDISM
     Route: 048
     Dates: start: 20160606
  26. NATRIUM CHLORIDE [Concomitant]
     Active Substance: SODIUM CHLORIDE
     Route: 042
     Dates: start: 20160620, end: 20160621
  27. DOXORUBICINE [Suspect]
     Active Substance: DOXORUBICIN
     Dosage: FOR 1 DAY
     Route: 042
     Dates: start: 20160621, end: 20160621
  28. PREDNISON [Suspect]
     Active Substance: PREDNISONE
     Indication: B-CELL LYMPHOMA
     Dosage: DATE OF LAST DOSE PRIOR TO SEPSIS: 21/JUN/2016
     Route: 048
     Dates: start: 20160607
  29. RANITIDIN [Concomitant]
     Active Substance: RANITIDINE HYDROCHLORIDE
     Dosage: 1 AMPULE
     Route: 042
     Dates: start: 20160606, end: 20160620
  30. PREDNISOLON [Concomitant]
     Active Substance: PREDNISOLONE
     Route: 042
     Dates: start: 20160606, end: 20160606
  31. KALIUM CHLORID [Concomitant]
     Active Substance: POTASSIUM CHLORIDE
     Route: 048
     Dates: start: 20160620, end: 20160623
  32. CYCLOPHOSPHAMIDE. [Suspect]
     Active Substance: CYCLOPHOSPHAMIDE
     Dosage: FOR 1 DAY
     Route: 042
     Dates: start: 20160621, end: 20160621
  33. FUROSEMIDE. [Concomitant]
     Active Substance: FUROSEMIDE
     Dosage: FOR 1 DAY
     Route: 042
     Dates: start: 20160607, end: 20160622

REACTIONS (3)
  - Sepsis [Recovered/Resolved]
  - Acute kidney injury [Recovered/Resolved]
  - Arrhythmia [Unknown]

NARRATIVE: CASE EVENT DATE: 20160607
